FAERS Safety Report 4713136-2 (Version None)
Quarter: 2005Q3

REPORT INFORMATION
  Report Type: 
  Country: None (occurrence: None)
  Receive Date: 20050713
  Receipt Date: 20050713
  Transmission Date: 20060218
  Serious: No
  Sender: FDA-Public Use
  Company Number: None

PATIENT

DRUGS (1)
  1. CLOZARIL [Suspect]

REACTIONS (5)
  - ABNORMAL BEHAVIOUR [None]
  - APPENDIX DISORDER [None]
  - POISONING [None]
  - RENAL FAILURE [None]
  - STOMACH DISCOMFORT [None]
